FAERS Safety Report 7320935-X (Version None)
Quarter: 2011Q1

REPORT INFORMATION
  Report Type: 
  Country: None (occurrence: None)
  Receive Date: 20110228
  Receipt Date: 20110221
  Transmission Date: 20110831
  Serious: Yes (Other)
  Sender: FDA-Public Use
  Company Number: US-ROCHE-761153

PATIENT
  Age: 59 Year
  Sex: Female

DRUGS (6)
  1. PEGYLATED LIPOSOMAL DOXORUBICIN [Suspect]
     Indication: OVARIAN EPITHELIAL CANCER RECURRENT
     Dosage: 7 COURSES
     Route: 065
  2. PACLITAXEL [Suspect]
     Indication: OVARIAN EPITHELIAL CANCER RECURRENT
     Dosage: 2 COURSES PRIOR TO OPTIMAL DEBULKING SURGERY AND 5 COURSES AFTER SURGERY
     Route: 065
  3. DOCETAXEL [Suspect]
     Indication: OVARIAN EPITHELIAL CANCER RECURRENT
     Dosage: ON DAY1 AND 8
     Route: 065
  4. TOPOTECAN [Suspect]
     Indication: OVARIAN EPITHELIAL CANCER RECURRENT
     Route: 065
  5. AVASTIN [Suspect]
     Indication: OVARIAN EPITHELIAL CANCER RECURRENT
     Dosage: ON DAY 1
     Route: 065
  6. CARBOPLATIN [Suspect]
     Indication: OVARIAN EPITHELIAL CANCER RECURRENT
     Dosage: 2 COURSES PRIOR TO OPTIMAL DEBULKING SURGERY AND 5 COURSES AFTER SURGERY
     Route: 065

REACTIONS (2)
  - BLADDER PERFORATION [None]
  - DIARRHOEA [None]
